FAERS Safety Report 5389147-3 (Version None)
Quarter: 2007Q3

REPORT INFORMATION
  Report Type: 
  Country: None (occurrence: None)
  Receive Date: 20070713
  Receipt Date: 20070713
  Transmission Date: 20080115
  Serious: Yes (Hospitalization)
  Sender: FDA-Public Use
  Company Number: None

PATIENT
  Age: 53 Year
  Sex: Female

DRUGS (6)
  1. AMPHOTERICIN B [Suspect]
     Indication: MENINGITIS CRYPTOCOCCAL
     Dosage: 60MG DAILY IV DRIP
     Route: 041
     Dates: start: 20060304, end: 20060307
  2. FLUCYTOSINE [Concomitant]
  3. AZITHROMYCIN [Concomitant]
  4. ACETAMINOPHEN [Concomitant]
  5. DIPHENHYDRAMINE HCL [Concomitant]
  6. DOCUSATE [Concomitant]

REACTIONS (1)
  - CONVULSION [None]
